FAERS Safety Report 5144960-2 (Version None)
Quarter: 2006Q4

REPORT INFORMATION
  Report Type: 
  Country: None (occurrence: None)
  Receive Date: 20061107
  Receipt Date: 20061026
  Transmission Date: 20070319
  Serious: Yes (Other)
  Sender: FDA-Public Use
  Company Number: NL-AMGEN-UK198329

PATIENT
  Age: 48 Year
  Sex: Male

DRUGS (6)
  1. NEULASTA [Suspect]
     Indication: CHEMOTHERAPY
     Route: 058
     Dates: start: 20061020, end: 20061020
  2. CYCLOPHOSPHAMIDE [Concomitant]
     Route: 065
  3. DOXORUBICIN HCL [Concomitant]
     Route: 065
  4. ETOPOSIDE [Concomitant]
     Route: 065
  5. DEXAMETHASONE TAB [Concomitant]
     Route: 065
     Dates: end: 20061023
  6. ASCAL [Concomitant]
     Route: 065

REACTIONS (4)
  - BONE PAIN [None]
  - DRUG INEFFECTIVE [None]
  - MALAISE [None]
  - PYREXIA [None]
